FAERS Safety Report 5359906-1 (Version None)
Quarter: 2007Q2

REPORT INFORMATION
  Report Type: 
  Country: None (occurrence: None)
  Receive Date: 20070531
  Receipt Date: 20060705
  Transmission Date: 20071010
  Serious: Yes (Other)
  Sender: FDA-Public Use
  Company Number: 28762

PATIENT
  Age: 31 Year
  Sex: Male
  Weight: 91.6266 kg

DRUGS (3)
  1. VINBLASTINE SULFATE [Suspect]
     Indication: HODGKIN'S DISEASE
     Dosage: 12MG/EVERY 2 WEEKS/IV
     Route: 042
     Dates: start: 20060607
  2. VINBLASTINE SULFATE [Suspect]
     Indication: HODGKIN'S DISEASE
     Dosage: 12MG/EVERY 2 WEEKS/IV
     Route: 042
     Dates: start: 20060621
  3. VINBLASTINE SULFATE [Suspect]
     Indication: HODGKIN'S DISEASE
     Dosage: 12MG/EVERY 2 WEEKS/IV
     Route: 042
     Dates: start: 20060705

REACTIONS (1)
  - PAIN IN JAW [None]
